FAERS Safety Report 21333794 (Version 3)
Quarter: 2022Q4

REPORT INFORMATION
  Report Type: Spontaneous
  Country: FR (occurrence: FR)
  Receive Date: 20220914
  Receipt Date: 20221012
  Transmission Date: 20230113
  Serious: Yes (Other)
  Sender: FDA-Public Use
  Company Number: FR-BAYER-2022P014220

PATIENT
  Sex: Female

DRUGS (1)
  1. KYLEENA [Suspect]
     Active Substance: LEVONORGESTREL
     Dosage: 17.5?G/DAY
     Route: 015
     Dates: start: 20190930, end: 20220908

REACTIONS (2)
  - Device breakage [Recovered/Resolved]
  - Complication of device removal [Recovered/Resolved]

NARRATIVE: CASE EVENT DATE: 20220908
